FAERS Safety Report 23191245 (Version 1)
Quarter: 2023Q4

REPORT INFORMATION
  Report Type: Report from Study
  Country: US (occurrence: US)
  Receive Date: 20231116
  Receipt Date: 20231116
  Transmission Date: 20240110
  Serious: No
  Sender: FDA-Public Use
  Company Number: US-ALXN-A202309796

PATIENT
  Sex: Female

DRUGS (1)
  1. STRENSIQ [Suspect]
     Active Substance: ASFOTASE ALFA
     Indication: Hypophosphatasia
     Dosage: UNK
     Route: 058

REACTIONS (4)
  - Injection site mass [Unknown]
  - Injection site atrophy [Unknown]
  - Injection site swelling [Unknown]
  - Injection site bruising [Not Recovered/Not Resolved]
